FAERS Safety Report 6175135-6 (Version None)
Quarter: 2009Q2

REPORT INFORMATION
  Report Type: 
  Country: None (occurrence: None)
  Receive Date: 20090430
  Receipt Date: 20090105
  Transmission Date: 20091009
  Serious: No
  Sender: FDA-Public Use
  Company Number: US-ASTRAZENECA-2009UW00330

PATIENT
  Age: 71 Year
  Sex: Female
  Weight: 56.2 kg

DRUGS (18)
  1. NEXIUM [Suspect]
     Indication: GASTROOESOPHAGEAL REFLUX DISEASE
     Route: 048
     Dates: start: 20050101
  2. TOPROL-XL [Concomitant]
     Route: 048
  3. HYZAAR [Concomitant]
  4. HYDROCHLOROTHIAZIDE [Concomitant]
  5. NORVASC [Concomitant]
  6. ZOCOR [Concomitant]
  7. PLAVIX [Concomitant]
  8. POTASSIUM CHLORIDE [Concomitant]
  9. LEVOXYL [Concomitant]
  10. VIACTIV [Concomitant]
  11. VITAMIN D3 [Concomitant]
  12. ASPIRIN [Concomitant]
  13. VITAMIN E [Concomitant]
  14. ASCORBIC ACID [Concomitant]
  15. CENTRUM SILVER [Concomitant]
  16. COENZYME Q10 [Concomitant]
  17. SLOW-FE [Concomitant]
  18. VITAMIN B-12 [Concomitant]

REACTIONS (4)
  - DIZZINESS [None]
  - OSTEOPOROSIS [None]
  - PERNICIOUS ANAEMIA [None]
  - VITAMIN B12 DEFICIENCY [None]
